FAERS Safety Report 7675652-3 (Version None)
Quarter: 2011Q3

REPORT INFORMATION
  Report Type: 
  Country: None (occurrence: None)
  Receive Date: 20110810
  Receipt Date: 20110801
  Transmission Date: 20111222
  Serious: Yes (Hospitalization, Other)
  Sender: FDA-Public Use
  Company Number: US-ELI_LILLY_AND_COMPANY-US201107005625

PATIENT
  Sex: Female

DRUGS (14)
  1. LEVOXYL [Concomitant]
     Dosage: 200 MG, QD
  2. ASPIRIN [Concomitant]
     Dosage: 81 MG, QOD
  3. SERTRALINE HYDROCHLORIDE [Concomitant]
     Dosage: 100 MG, QD
  4. SOTALOL                            /00371501/ [Concomitant]
     Dosage: 80 MG, BID
  5. MULTI-VITAMIN [Concomitant]
     Dosage: UNK, QD
  6. TYLENOL (CAPLET) [Concomitant]
     Dosage: 325 MG, PRN
  7. BYETTA [Suspect]
     Indication: TYPE 2 DIABETES MELLITUS
     Dosage: 5 UG, BID
     Dates: start: 20110401, end: 20110501
  8. SPIRONOLACTONE [Concomitant]
     Dosage: 100 MG, BID
  9. SIMVASTATIN [Concomitant]
     Dosage: 10 MG, QD
     Dates: end: 20110701
  10. VITAMIN D [Concomitant]
     Dosage: 2000 IU, QD
  11. METFORMIN HCL [Concomitant]
     Dosage: 1000 MG, BID
  12. LOVAZA [Concomitant]
     Dosage: UNK, BID
  13. BYETTA [Suspect]
     Dosage: 10 UG, UNK
     Dates: end: 20110611
  14. NASONEX [Concomitant]
     Dosage: 50 UG, PRN

REACTIONS (3)
  - CHOLELITHIASIS [None]
  - PANCREATITIS ACUTE [None]
  - WEIGHT DECREASED [None]
